FAERS Safety Report 5419787-4 (Version None)
Quarter: 2007Q3

REPORT INFORMATION
  Report Type: 
  Country: None (occurrence: None)
  Receive Date: 20070820
  Receipt Date: 20070810
  Transmission Date: 20080115
  Serious: Yes (Other)
  Sender: FDA-Public Use
  Company Number: RU-ASTRAZENECA-2007SE04352

PATIENT
  Age: 18308 Day
  Sex: Female
  Weight: 77 kg

DRUGS (2)
  1. CRESTOR [Suspect]
     Indication: HYPERLIPIDAEMIA
     Route: 048
     Dates: start: 20070802, end: 20070806
  2. ALBAREL [Concomitant]
     Indication: HYPERTENSION
     Route: 048
     Dates: start: 20070706

REACTIONS (3)
  - ERYTHEMA [None]
  - PRURITUS [None]
  - RASH [None]
